FAERS Safety Report 6279922-5 (Version None)
Quarter: 2009Q3

REPORT INFORMATION
  Report Type: 
  Country: None (occurrence: None)
  Receive Date: 20090723
  Receipt Date: 20090512
  Transmission Date: 20100115
  Serious: No
  Sender: FDA-Public Use
  Company Number: US-AMGEN-KDL346794

PATIENT
  Sex: Male

DRUGS (2)
  1. EPOGEN [Suspect]
     Indication: DIALYSIS
     Dates: start: 20070105, end: 20090506
  2. HEPARIN [Concomitant]

REACTIONS (1)
  - DERMATITIS CONTACT [None]
